FAERS Safety Report 12982344 (Version 1)
Quarter: 2016Q4

REPORT INFORMATION
  Report Type: Spontaneous
  Country: US (occurrence: US)
  Receive Date: 20161128
  Receipt Date: 20161128
  Transmission Date: 20170207
  Serious: Yes (Hospitalization)
  Sender: FDA-Public Use
  Company Number: None

PATIENT
  Age: 62 Year
  Sex: Female
  Weight: 52.3 kg

DRUGS (6)
  1. FISH OIL [Concomitant]
     Active Substance: FISH OIL
  2. VIEKIRA PAK [Suspect]
     Active Substance: DASABUVIR\OMBITASVIR\PARITAPREVIR\RITONAVIR
     Indication: HEPATITIS C
     Route: 048
     Dates: start: 20160716, end: 20161007
  3. MULTIVITAMIN [Concomitant]
     Active Substance: VITAMINS
  4. PREMARIN [Concomitant]
     Active Substance: ESTROGENS, CONJUGATED
  5. ACETAMINOPHEN. [Concomitant]
     Active Substance: ACETAMINOPHEN
  6. FLUOCINOLONE [Concomitant]
     Active Substance: FLUOCINOLONE

REACTIONS (5)
  - Acute kidney injury [None]
  - Swelling [None]
  - Hyperuricaemia [None]
  - Dyspnoea [None]
  - Back pain [None]

NARRATIVE: CASE EVENT DATE: 20161013
